FAERS Safety Report 4827006-2 (Version None)
Quarter: 2005Q4

REPORT INFORMATION
  Report Type: 
  Country: None (occurrence: None)
  Receive Date: 20051014
  Receipt Date: 20050616
  Transmission Date: 20060501
  Serious: No
  Sender: FDA-Public Use
  Company Number: 2005SP001440

PATIENT
  Age: 63 Year
  Sex: Female
  Weight: 61.2356 kg

DRUGS (1)
  1. LUNESTA [Suspect]
     Dosage: ORAL
     Route: 048
     Dates: start: 20050519, end: 20050526

REACTIONS (1)
  - DYSGEUSIA [None]
